FAERS Safety Report 17266401 (Version 2)
Quarter: 2020Q3

REPORT INFORMATION
  Report Type: Report from Study
  Country: BR (occurrence: BR)
  Receive Date: 20200114
  Receipt Date: 20200507
  Transmission Date: 20201104
  Serious: Yes (Other)
  Sender: FDA-Public Use
  Company Number: NVSC2019BR070095

PATIENT
  Sex: Female

DRUGS (2)
  1. MONTELUKAST [Suspect]
     Active Substance: MONTELUKAST SODIUM
     Indication: ASTHMATIC CRISIS
     Route: 065
  2. XOLAIR [Suspect]
     Active Substance: OMALIZUMAB
     Indication: ASTHMA
     Dosage: UNK
     Route: 065
     Dates: start: 20190717, end: 20191022

REACTIONS (5)
  - Asphyxia [Not Recovered/Not Resolved]
  - Therapeutic response decreased [Unknown]
  - Heart rate increased [Not Recovered/Not Resolved]
  - Asthmatic crisis [Recovering/Resolving]
  - Fatigue [Not Recovered/Not Resolved]
